FAERS Safety Report 13251029 (Version 1)
Quarter: 2017Q1

REPORT INFORMATION
  Report Type: Spontaneous
  Country: US (occurrence: US)
  Receive Date: 20170220
  Receipt Date: 20170220
  Transmission Date: 20170428
  Serious: Yes (Other)
  Sender: FDA-Public Use
  Company Number: US-SUN PHARMACEUTICAL INDUSTRIES LTD-2016US-121344

PATIENT
  Age: 66 Year
  Sex: Male

DRUGS (1)
  1. ZOLEDRONIC ACID [Suspect]
     Active Substance: ZOLEDRONIC ACID
     Indication: OSTEOPOROSIS
     Dosage: UNK
     Route: 042

REACTIONS (6)
  - Optic neuritis [Unknown]
  - Retinopathy [Unknown]
  - Cataract [Unknown]
  - Cystoid macular oedema [Not Recovered/Not Resolved]
  - Idiopathic orbital inflammation [Recovering/Resolving]
  - Visual acuity reduced [Not Recovered/Not Resolved]
